FAERS Safety Report 12491231 (Version 2)
Quarter: 2016Q2

REPORT INFORMATION
  Report Type: Spontaneous
  Country: CN (occurrence: CN)
  Receive Date: 20160623
  Receipt Date: 20160627
  Transmission Date: 20160815
  Serious: Yes (Hospitalization)
  Sender: FDA-Public Use
  Company Number: CN-009507513-1505CHN000642

PATIENT
  Age: 41 Year
  Sex: Female
  Weight: 64 kg

DRUGS (17)
  1. FU FANG KU SHEN ZHU SHE YE [Concomitant]
     Indication: IMMUNE SYSTEM DISORDER
     Dosage: TOTAL DAILY DOSE: 12 ML/CC
     Route: 041
     Dates: start: 20150411, end: 20150413
  2. EPIRUBICIN HYDROCHLORIDE. [Concomitant]
     Active Substance: EPIRUBICIN HYDROCHLORIDE
     Dosage: DOSE: 150 MG, TREATMENT REGIMEN: EC, TREATMENT CYCLE: 1/UNK
     Route: 041
     Dates: start: 20150417, end: 20150417
  3. EMEND [Suspect]
     Active Substance: APREPITANT
     Indication: PROPHYLAXIS OF NAUSEA AND VOMITING
     Dosage: 125 MG, QD
     Route: 048
     Dates: start: 20150417, end: 20150417
  4. LANSOPRAZOLE. [Concomitant]
     Active Substance: LANSOPRAZOLE
     Indication: PROPHYLAXIS AGAINST GASTROINTESTINAL ULCER
     Dosage: TOTAL DAILY DOSE: 30 MG
     Route: 041
     Dates: start: 20150417, end: 20150420
  5. KANG AI ZHU SHE YE [Concomitant]
     Indication: IMMUNE SYSTEM DISORDER
     Dosage: TOTAL DAILY DOSE: 20 G
     Route: 041
     Dates: start: 20150417, end: 20150420
  6. LIDOCAINE HYDROCHLORIDE. [Concomitant]
     Active Substance: LIDOCAINE HYDROCHLORIDE
     Indication: ANAESTHESIA
     Dosage: 5 ML/CC, ONCE
     Route: 058
     Dates: start: 20150414, end: 20150414
  7. ENOXAPARIN SODIUM. [Concomitant]
     Active Substance: ENOXAPARIN SODIUM
     Indication: ANTICOAGULANT THERAPY
     Dosage: TOTAL DAILY DOSE: 12500 UNITS, ONCE
     Route: 058
     Dates: start: 20150414, end: 20150414
  8. UBENIMEX [Concomitant]
     Active Substance: UBENIMEX
     Indication: PROPHYLAXIS
     Dosage: 30 MG, QD
     Route: 048
     Dates: start: 20150420
  9. SHEN QI FU ZHENG ZHU SHE YE [Concomitant]
     Indication: IMMUNE SYSTEM DISORDER
     Dosage: TOTAL DAILY DOSE: 250 ML/CC
     Route: 041
     Dates: start: 20150411, end: 20150413
  10. TORSEMIDE. [Concomitant]
     Active Substance: TORSEMIDE
     Indication: CARDIOVASCULAR EVENT PROPHYLAXIS
     Dosage: 10 MG, ONCE
     Route: 042
     Dates: start: 20150420, end: 20150420
  11. SHEN QI FU ZHENG ZHU SHE YE [Concomitant]
     Dosage: TOTAL DAILY DOSE: 250 ML/CC
     Route: 041
     Dates: start: 20150417, end: 20150420
  12. PALONOSETRON HYDROCHLORIDE. [Concomitant]
     Active Substance: PALONOSETRON HYDROCHLORIDE
     Indication: PROPHYLAXIS OF NAUSEA AND VOMITING
     Dosage: 0.25 MG, ONCE
     Route: 042
     Dates: start: 20150417, end: 20150417
  13. RECOMBINANT HUMAN ENDOSTATIN [Concomitant]
     Active Substance: ENDOSTATIN
     Indication: PROPHYLAXIS
     Dosage: TOTAL DAILY DOSE: 200 UG/MCG
     Route: 058
     Dates: start: 20150420
  14. CYCLOPHOSPHAMIDE. [Concomitant]
     Active Substance: CYCLOPHOSPHAMIDE
     Dosage: DOSE: 0.9 G, TREATMENT REGIMEN: EC, TREATMENT CYCLE: 1/UNK
     Route: 041
     Dates: start: 20150417, end: 20150417
  15. DEXAMETHASONE. [Concomitant]
     Active Substance: DEXAMETHASONE
     Indication: PROPHYLAXIS OF NAUSEA AND VOMITING
     Dosage: TOTAL DAILY DOSE: 8 MG
     Route: 042
     Dates: start: 20150417, end: 20150419
  16. DEXRAZOXANE. [Concomitant]
     Active Substance: DEXRAZOXANE
     Indication: CARDIOVASCULAR EVENT PROPHYLAXIS
     Dosage: 6,UNITS: BOTTLE, ONCE
     Route: 041
     Dates: start: 20150417, end: 20150417
  17. EMEND [Suspect]
     Active Substance: APREPITANT
     Dosage: 80 MG, QD
     Route: 048
     Dates: start: 20150418, end: 20150419

REACTIONS (1)
  - Urinary tract infection [Recovered/Resolved]

NARRATIVE: CASE EVENT DATE: 20150424
